FAERS Safety Report 5841941-8 (Version None)
Quarter: 2008Q3

REPORT INFORMATION
  Report Type: 
  Country: None (occurrence: None)
  Receive Date: 20080812
  Receipt Date: 20080804
  Transmission Date: 20090109
  Serious: Yes (Disabling, Other)
  Sender: FDA-Public Use
  Company Number: US-MERCK-0805USA00457

PATIENT
  Age: 75 Year
  Sex: Female
  Weight: 58 kg

DRUGS (4)
  1. FOSAMAX [Suspect]
     Indication: OSTEOPOROSIS
     Route: 048
     Dates: start: 20000601
  2. FOSAMAX [Suspect]
     Route: 048
     Dates: start: 20001201, end: 20010101
  3. FOSAMAX [Suspect]
     Route: 048
     Dates: start: 20030101, end: 20060801
  4. FOSAMAX PLUS D [Suspect]
     Indication: OSTEOPOROSIS
     Route: 048

REACTIONS (20)
  - ABDOMINAL DISCOMFORT [None]
  - ADVERSE DRUG REACTION [None]
  - ALOPECIA [None]
  - ANIMAL BITE [None]
  - BREAST MASS [None]
  - CATARACT [None]
  - CORONARY ARTERY DISEASE [None]
  - DEAFNESS [None]
  - DRUG HYPERSENSITIVITY [None]
  - DRUG INTOLERANCE [None]
  - GINGIVITIS [None]
  - HAEMATURIA [None]
  - JAW DISORDER [None]
  - JOINT DISLOCATION [None]
  - MASTICATION DISORDER [None]
  - MIGRAINE [None]
  - OSTEOARTHRITIS [None]
  - RESORPTION BONE INCREASED [None]
  - SKIN CANCER [None]
  - STRESS URINARY INCONTINENCE [None]
